FAERS Safety Report 26188833 (Version 1)
Quarter: 2025Q4

REPORT INFORMATION
  Report Type: Spontaneous
  Country: EU (occurrence: EU)
  Receive Date: 20251222
  Receipt Date: 20251222
  Transmission Date: 20260118
  Serious: Yes (Other)
  Sender: JOHNSON AND JOHNSON
  Company Number: None

PATIENT
  Age: 48 Year
  Sex: Male
  Weight: 62 kg

DRUGS (2)
  1. RILPIVIRINE [Suspect]
     Active Substance: RILPIVIRINE
     Indication: HIV infection
     Dosage: 1 IM INJECTION EVERY TWO MONTHS, DATE OF LAST ADMINISTRATION 27-11-2025
     Route: 030
     Dates: start: 20220224
  2. VOCABRIA [Suspect]
     Active Substance: CABOTEGRAVIR SODIUM
     Indication: HIV infection
     Dosage: 1 INJECTION IM BIMESTRIELLE, DATE DE LA DERNI?RE ADMINISTRATION 27-11-2025
     Route: 030
     Dates: start: 20220224

REACTIONS (4)
  - Hot flush [Recovered/Resolved]
  - Dyspnoea [Recovered/Resolved]
  - Malaise [Recovered/Resolved]
  - Back pain [Recovered/Resolved]

NARRATIVE: CASE EVENT DATE: 20251127
